FAERS Safety Report 7464673-1 (Version None)
Quarter: 2011Q2

REPORT INFORMATION
  Report Type: 
  Country: None (occurrence: None)
  Receive Date: 20110509
  Receipt Date: 20110421
  Transmission Date: 20111010
  Serious: No
  Sender: FDA-Public Use
  Company Number: US-B.I. PHARMACEUTICALS,INC./RIDGEFIELD-2011-BP-05804BP

PATIENT
  Sex: Male

DRUGS (15)
  1. DIGOXIN [Concomitant]
     Indication: ATRIAL FIBRILLATION
  2. LUMIGAN [Concomitant]
     Indication: INTRAOCULAR PRESSURE INCREASED
  3. LOVAZA [Concomitant]
     Indication: PROPHYLAXIS
  4. MULTI-VITAMIN [Concomitant]
     Indication: PROPHYLAXIS
  5. PRADAXA [Suspect]
     Indication: ATRIAL FIBRILLATION
     Dosage: 300 MG
     Route: 048
     Dates: start: 20110114
  6. ALLOPURINOL [Concomitant]
     Indication: BLOOD URIC ACID INCREASED
  7. VITAMIN C [Concomitant]
     Indication: PROPHYLAXIS
  8. RANTIDINE [Concomitant]
     Indication: GASTROOESOPHAGEAL REFLUX DISEASE
  9. GLUCOSAMINE/CHONDROITIN [Concomitant]
     Indication: ARTHRITIS
  10. AVODART [Concomitant]
     Indication: PROSTATOMEGALY
  11. FLOMAX [Concomitant]
     Indication: DYSURIA
  12. BIMATOPROST EYE SOLN [Concomitant]
  13. LIPITOR [Concomitant]
     Indication: BLOOD CHOLESTEROL INCREASED
     Dates: start: 20101201
  14. CLONAZEPAM [Concomitant]
     Indication: POST POLIO SYNDROME
  15. ATENOLOL [Concomitant]
     Indication: HYPERTENSION

REACTIONS (3)
  - GASTRITIS [None]
  - ABDOMINAL DISCOMFORT [None]
  - FLATULENCE [None]
